FAERS Safety Report 11333512 (Version 1)
Quarter: 2015Q3

REPORT INFORMATION
  Report Type: Spontaneous
  Country: US (occurrence: US)
  Receive Date: 20150803
  Receipt Date: 20150803
  Transmission Date: 20151125
  Serious: Yes (Hospitalization, Other)
  Sender: FDA-Public Use
  Company Number: US-ELI_LILLY_AND_COMPANY-US200801004688

PATIENT
  Sex: Female
  Weight: 79.37 kg

DRUGS (3)
  1. ZYPREXA [Suspect]
     Active Substance: OLANZAPINE
     Dosage: 10 MG, UNK
     Dates: start: 2000, end: 2005
  2. METOPROLOL [Concomitant]
     Active Substance: METOPROLOL
     Dates: start: 20070327
  3. ZYPREXA [Suspect]
     Active Substance: OLANZAPINE
     Indication: NERVOUSNESS
     Dosage: UNK, UNK
     Dates: start: 1999, end: 20040515

REACTIONS (2)
  - Pancreatitis [Not Recovered/Not Resolved]
  - Diabetes mellitus [Not Recovered/Not Resolved]

NARRATIVE: CASE EVENT DATE: 2000
